FAERS Safety Report 16753334 (Version 1)
Quarter: 2019Q3

REPORT INFORMATION
  Report Type: Spontaneous
  Country: US (occurrence: US)
  Receive Date: 20190829
  Receipt Date: 20190829
  Transmission Date: 20191005
  Serious: No
  Sender: FDA-Public Use
  Company Number: US-TEVA-2019-US-1100980

PATIENT
  Sex: Female

DRUGS (1)
  1. GABAPENTIN. [Suspect]
     Active Substance: GABAPENTIN
     Dosage: 100 MG
     Dates: start: 201908

REACTIONS (5)
  - Peripheral swelling [Unknown]
  - Decreased appetite [Unknown]
  - Blister [Unknown]
  - Blood glucose decreased [Unknown]
  - Lip blister [Unknown]

NARRATIVE: CASE EVENT DATE: 201908
